FAERS Safety Report 25443573 (Version 2)
Quarter: 2025Q2

REPORT INFORMATION
  Report Type: Report from Study
  Country: US (occurrence: US)
  Receive Date: 20250617
  Receipt Date: 20250619
  Transmission Date: 20250717
  Serious: Yes (Other)
  Sender: ABBVIE
  Company Number: US-ABBVIE-6325575

PATIENT
  Age: 57 Year
  Sex: Female

DRUGS (1)
  1. SKYRIZI [Suspect]
     Active Substance: RISANKIZUMAB-RZAA
     Indication: Crohn^s disease
     Route: 042
     Dates: start: 20250420

REACTIONS (3)
  - Vitreous floaters [Unknown]
  - Ocular hyperaemia [Unknown]
  - Retinal tear [Recovering/Resolving]

NARRATIVE: CASE EVENT DATE: 20250101
